FAERS Safety Report 14166220 (Version 1)
Quarter: 2017Q4

REPORT INFORMATION
  Report Type: Spontaneous
  Country: US (occurrence: US)
  Receive Date: 20171106
  Receipt Date: 20171106
  Transmission Date: 20180321
  Serious: Yes (Other)
  Sender: FDA-Public Use
  Company Number: None

PATIENT
  Age: 64 Year
  Sex: Female
  Weight: 56.25 kg

DRUGS (5)
  1. CALTRATE [Concomitant]
     Active Substance: CALCIUM CARBONATE
  2. LUTEIN [Concomitant]
     Active Substance: LUTEIN
  3. NATURE MADE SUPER B VITAMIN [Concomitant]
  4. ONC-MONTHLY IBANDRONATE SODIUM TABLET 150 MG [Suspect]
     Active Substance: IBANDRONATE SODIUM
     Indication: OSTEOPOROSIS
     Dosage: ?          QUANTITY:1 TABLET(S);OTHER FREQUENCY:MONTHY;?
     Route: 048
     Dates: start: 20170922, end: 20170923
  5. NATURE MADE D3 [Concomitant]

REACTIONS (8)
  - Loss of consciousness [None]
  - Fall [None]
  - Back pain [None]
  - Diarrhoea [None]
  - Asthenia [None]
  - Fractured coccyx [None]
  - Hypertension [None]
  - Orthostatic hypotension [None]

NARRATIVE: CASE EVENT DATE: 20170923
